FAERS Safety Report 4393613-7 (Version None)
Quarter: 2004Q3

REPORT INFORMATION
  Report Type: 
  Country: None (occurrence: None)
  Receive Date: 20040708
  Receipt Date: 20040708
  Transmission Date: 20050211
  Serious: Yes (Other)
  Sender: FDA-Public Use
  Company Number: None

PATIENT
  Age: 38 Year
  Sex: Female
  Weight: 72.1219 kg

DRUGS (1)
  1. PPD [Suspect]
     Indication: TUBERCULIN TEST
     Dosage: 0.1 MM INTRACUTANEOUS
     Route: 003
     Dates: start: 20040607

REACTIONS (6)
  - BLOOD PRESSURE INCREASED [None]
  - DIZZINESS [None]
  - DYSPNOEA [None]
  - FEELING HOT [None]
  - RASH [None]
  - URTICARIA [None]
